FAERS Safety Report 5277248-X (Version None)
Quarter: 2007Q1

REPORT INFORMATION
  Report Type: 
  Country: None (occurrence: None)
  Receive Date: 20061213
  Receipt Date: 20060706
  Transmission Date: 20070707
  Serious: No
  Sender: FDA-Public Use
  Company Number: 2006UW14034

PATIENT
  Age: 7 Year
  Sex: Male

DRUGS (3)
  1. SEROQUEL [Suspect]
     Dosage: 100 MG
  2. ATTENTION DEFICIT HYPERACTIVITY DISEASE DRUG [Concomitant]
  3. CLONIDINE [Concomitant]

REACTIONS (1)
  - EXTRAPYRAMIDAL DISORDER [None]
